FAERS Safety Report 7128294-2 (Version None)
Quarter: 2010Q4

REPORT INFORMATION
  Report Type: 
  Country: None (occurrence: None)
  Receive Date: 20101130
  Receipt Date: 20101117
  Transmission Date: 20110411
  Serious: Yes (Hospitalization)
  Sender: FDA-Public Use
  Company Number: PHHY2010FR78999

PATIENT
  Age: 23 Year
  Sex: Male

DRUGS (2)
  1. TEGRETOL [Suspect]
     Dosage: UNK
     Dates: start: 20030101
  2. ZYPREXA [Suspect]
     Dosage: UNK
     Dates: start: 20050101

REACTIONS (8)
  - APHASIA [None]
  - BLOOD BILIRUBIN INCREASED [None]
  - BLOOD CHOLESTEROL INCREASED [None]
  - BLOOD CREATININE INCREASED [None]
  - CEREBROVASCULAR ACCIDENT [None]
  - CREATININE RENAL CLEARANCE INCREASED [None]
  - PROTHROMBIN TIME RATIO INCREASED [None]
  - THROMBOSIS [None]
